FAERS Safety Report 13824706 (Version 1)
Quarter: 2017Q3

REPORT INFORMATION
  Report Type: Spontaneous
  Country: US (occurrence: US)
  Receive Date: 20170802
  Receipt Date: 20170802
  Transmission Date: 20171127
  Serious: No
  Sender: FDA-Public Use
  Company Number: None

PATIENT
  Age: 32 Year
  Sex: Female

DRUGS (1)
  1. BANANA BOAT KIDS TEAR FREE CONTINUOUS SPF 50 [Suspect]
     Active Substance: AVOBENZONE\HOMOSALATE\OCTINOXATE\OCTISALATE\OCTOCRYLENE

REACTIONS (2)
  - Discomfort [None]
  - Sunburn [None]

NARRATIVE: CASE EVENT DATE: 20170705
